FAERS Safety Report 13125619 (Version 1)
Quarter: 2017Q1

REPORT INFORMATION
  Report Type: Report from Study
  Country: US (occurrence: US)
  Receive Date: 20170118
  Receipt Date: 20170118
  Transmission Date: 20170428
  Serious: Yes (Other)
  Sender: FDA-Public Use
  Company Number: PHEH2017US001453

PATIENT
  Sex: Female

DRUGS (2)
  1. GILENYA [Suspect]
     Active Substance: FINGOLIMOD HYDROCHLORIDE
     Dosage: 0.5 MG, TIW (ON MONDAY, WEDNESDAY AND FRIDAY)
     Route: 048
     Dates: start: 20161214
  2. GILENYA [Suspect]
     Active Substance: FINGOLIMOD HYDROCHLORIDE
     Indication: MULTIPLE SCLEROSIS
     Dosage: 0.5 MG, UNK
     Route: 048
     Dates: start: 20160118

REACTIONS (8)
  - Optic neuritis [Not Recovered/Not Resolved]
  - Vitamin D deficiency [Unknown]
  - Cognitive disorder [Not Recovered/Not Resolved]
  - White blood cell count decreased [Unknown]
  - Prescribed underdose [Unknown]
  - Vitamin B12 deficiency [Unknown]
  - Zinc deficiency [Unknown]
  - Dizziness [Not Recovered/Not Resolved]
